FAERS Safety Report 11033974 (Version 2)
Quarter: 2015Q2

REPORT INFORMATION
  Report Type: Spontaneous
  Country: US (occurrence: US)
  Receive Date: 20150415
  Receipt Date: 20150512
  Transmission Date: 20150821
  Serious: Yes (Death)
  Sender: FDA-Public Use
  Company Number: US-ELI_LILLY_AND_COMPANY-US201504003750

PATIENT
  Age: 95 Year
  Sex: Female
  Weight: 81.63 kg

DRUGS (3)
  1. FORTEO [Suspect]
     Active Substance: TERIPARATIDE
     Indication: OSTEOPOROSIS
     Dosage: UNK, QD
     Route: 058
     Dates: start: 20150318, end: 20150325
  2. FORTEO [Suspect]
     Active Substance: TERIPARATIDE
     Indication: PELVIC FRACTURE
  3. MORPHINE SULFATE. [Concomitant]
     Active Substance: MORPHINE SULFATE
     Indication: PRODUCT USED FOR UNKNOWN INDICATION
     Dosage: UNK, UNKNOWN
     Route: 065

REACTIONS (2)
  - Dehydration [Fatal]
  - Eating disorder [Unknown]

NARRATIVE: CASE EVENT DATE: 20150408
